FAERS Safety Report 25091050 (Version 2)
Quarter: 2025Q2

REPORT INFORMATION
  Report Type: Spontaneous
  Country: US (occurrence: US)
  Receive Date: 20250318
  Receipt Date: 20250514
  Transmission Date: 20250716
  Serious: Yes (Other)
  Sender: RADIUS PHARM
  Company Number: US-RADIUS HEALTH INC.-2025US002426

PATIENT
  Age: 66 Year
  Sex: Female

DRUGS (4)
  1. TYMLOS [Suspect]
     Active Substance: ABALOPARATIDE
     Indication: Senile osteoporosis
     Dosage: 40 MICROGRAM, QD
     Route: 058
     Dates: start: 20250206, end: 202502
  2. TYMLOS [Suspect]
     Active Substance: ABALOPARATIDE
     Indication: Pathological fracture
     Dosage: 80 MICROGRAM, QD
     Route: 058
     Dates: start: 202502, end: 2025
  3. TYMLOS [Suspect]
     Active Substance: ABALOPARATIDE
     Dosage: 40 MICROGRAM, QD
     Route: 058
     Dates: start: 20250315, end: 20250315
  4. TYMLOS [Suspect]
     Active Substance: ABALOPARATIDE
     Dosage: 20 MICROGRAM, QD
     Route: 058
     Dates: start: 20250321, end: 20250403

REACTIONS (4)
  - Breast cancer [Unknown]
  - Trigger finger [Unknown]
  - Arthralgia [Unknown]
  - Intentional product misuse [Unknown]

NARRATIVE: CASE EVENT DATE: 20250201
